FAERS Safety Report 25330571 (Version 1)
Quarter: 2025Q2

REPORT INFORMATION
  Report Type: Spontaneous
  Country: CA (occurrence: CA)
  Receive Date: 20250519
  Receipt Date: 20250519
  Transmission Date: 20250717
  Serious: Yes (Hospitalization, Other)
  Sender: BRACCO
  Company Number: CA-BRACCO-2025CA02758

PATIENT
  Age: 90 Year
  Sex: Female

DRUGS (1)
  1. PROHANCE [Suspect]
     Active Substance: GADOTERIDOL
     Indication: Magnetic resonance imaging
     Route: 042
     Dates: start: 20250419, end: 20250419

REACTIONS (7)
  - Acute myocardial infarction [Unknown]
  - Vasospasm [Unknown]
  - Urticaria [Recovered/Resolved]
  - Throat tightness [Recovered/Resolved]
  - Speech disorder [Recovered/Resolved]
  - Dyspnoea [Recovered/Resolved]
  - Erythema [Recovered/Resolved]

NARRATIVE: CASE EVENT DATE: 20250419
